FAERS Safety Report 7934268-1 (Version None)
Quarter: 2011Q4

REPORT INFORMATION
  Report Type: 
  Country: None (occurrence: None)
  Receive Date: 20111122
  Receipt Date: 20111116
  Transmission Date: 20120403
  Serious: Yes (Hospitalization)
  Sender: FDA-Public Use
  Company Number: US-ALEXION-A201101668

PATIENT
  Sex: Male
  Weight: 43.8 kg

DRUGS (11)
  1. SOLIRIS [Suspect]
     Indication: HAEMOLYTIC URAEMIC SYNDROME
     Dosage: 900 MG, QW
     Route: 042
     Dates: start: 20111014, end: 20111104
  2. SOLIRIS [Suspect]
     Dosage: 1200 MG, Q2W
     Route: 042
  3. URSODIOL [Concomitant]
     Dosage: 300 MG, UNK
  4. PREDNISONE TAB [Concomitant]
     Dosage: 1, QOD
     Route: 048
  5. SEVELAMER [Concomitant]
     Dosage: 1600 MG, UNK
  6. HYDRALAZINE HCL [Concomitant]
     Dosage: UNK
  7. ENALAPRIL MALEATE [Concomitant]
     Dosage: 10 MG, UNK
  8. CALCIUM CARBONATE [Concomitant]
     Dosage: UNK
  9. AMLODIPINE [Concomitant]
     Dosage: 5 MG, UNK
  10. LOPERAMIDE HCL [Concomitant]
     Dosage: 6 MG, UNK
  11. PANTOPRAZOLE [Concomitant]
     Dosage: 40 MG, UNK

REACTIONS (1)
  - WEIGHT DECREASED [None]
